FAERS Safety Report 24304982 (Version 3)
Quarter: 2024Q3

REPORT INFORMATION
  Report Type: Spontaneous
  Country: SA (occurrence: SA)
  Receive Date: 20240911
  Receipt Date: 20240924
  Transmission Date: 20241017
  Serious: Yes (Other)
  Sender: NOVARTIS
  Company Number: SA-002147023-NVSC2024SA175648

PATIENT
  Age: 0 Year
  Sex: Female
  Weight: 5.1 kg

DRUGS (5)
  1. ZOLGENSMA [Suspect]
     Active Substance: ONASEMNOGENE ABEPARVOVEC-XIOI
     Indication: Spinal muscular atrophy
     Dosage: UNK, ONCE/SINGLE
     Route: 042
     Dates: start: 20240827, end: 20240827
  2. PREDO [Concomitant]
     Indication: Prophylaxis
     Dosage: 2 ML (INFUSION PROTOCOL, GIVEN 24HRS BEFORE  ZOLGENSMA  INFUSION, IV INFUSION)
     Route: 042
     Dates: start: 20240826
  3. PREDO [Concomitant]
     Dosage: 2.7 ML (INFUSION PROTOCOL, GIVEN  CONTINOUSLY UNTIL DOCTORS ORDER)
     Route: 042
     Dates: start: 20240826
  4. PREDO [Concomitant]
     Dosage: 2.7 ML (INFUSION PROTOCOL, GIVEN  CONTINOUSLY UNTIL DOCTORS ORDER)
     Route: 042
     Dates: start: 20240828
  5. PREDO [Concomitant]
     Dosage: 2.5 ML (INFUSION PROTOCOL, GIVEN  CONTINOUSLY  UNTIL DOCTORS ORDER)
     Route: 042
     Dates: start: 20240909

REACTIONS (9)
  - Aspartate aminotransferase increased [Recovered/Resolved]
  - Alanine aminotransferase increased [Recovered/Resolved]
  - Laboratory test abnormal [Recovered/Resolved]
  - Choking [Recovered/Resolved]
  - Platelet count abnormal [Not Recovered/Not Resolved]
  - Diarrhoea [Recovered/Resolved]
  - Abdominal pain [Recovered/Resolved]
  - Ocular hyperaemia [Recovered/Resolved]
  - Laboratory test abnormal [Unknown]

NARRATIVE: CASE EVENT DATE: 20240828
